FAERS Safety Report 12822925 (Version 1)
Quarter: 2016Q4

REPORT INFORMATION
  Report Type: Spontaneous
  Country: US (occurrence: US)
  Receive Date: 20161007
  Receipt Date: 20161007
  Transmission Date: 20170207
  Serious: Yes (Other)
  Sender: FDA-Public Use
  Company Number: US-ROCHE-1838483

PATIENT
  Sex: Male

DRUGS (4)
  1. RIFAMPIN. [Suspect]
     Active Substance: RIFAMPIN
     Indication: STAPHYLOCOCCAL INFECTION
     Route: 065
  2. XOLAIR [Suspect]
     Active Substance: OMALIZUMAB
     Indication: CHRONIC SPONTANEOUS URTICARIA
     Dosage: 300 MG EVERY 30 DAYS
     Route: 065
     Dates: start: 201501
  3. VANCOMYCIN [Suspect]
     Active Substance: VANCOMYCIN
     Indication: STAPHYLOCOCCAL INFECTION
     Route: 065
  4. DAPTOMYCIN. [Concomitant]
     Active Substance: DAPTOMYCIN
     Indication: STAPHYLOCOCCAL INFECTION

REACTIONS (3)
  - Anaphylactic reaction [Recovered/Resolved]
  - Red man syndrome [Unknown]
  - Staphylococcal infection [Unknown]
